FAERS Safety Report 5526897-X (Version None)
Quarter: 2007Q4

REPORT INFORMATION
  Report Type: 
  Country: None (occurrence: None)
  Receive Date: 20071127
  Receipt Date: 20071115
  Transmission Date: 20080405
  Serious: Yes (Hospitalization, Other)
  Sender: FDA-Public Use
  Company Number: FR-PFIZER INC-2007089670

PATIENT
  Sex: Male
  Weight: 80 kg

DRUGS (7)
  1. LYRICA [Suspect]
     Indication: NEUROPATHY PERIPHERAL
     Dosage: DAILY DOSE:150MG
     Route: 048
  2. LYRICA [Suspect]
     Indication: PAIN
  3. PREVISCAN [Concomitant]
     Indication: PHLEBITIS
     Dosage: DAILY DOSE:15MG
     Route: 048
  4. ALLOPURINOL [Concomitant]
     Indication: HYPERURICAEMIA
     Dosage: DAILY DOSE:100MG
     Route: 048
  5. IMOVANE [Concomitant]
     Indication: INSOMNIA
     Route: 048
  6. DRUG, UNSPECIFIED [Concomitant]
  7. TAXOTERE [Concomitant]
     Indication: PROSTATE CANCER

REACTIONS (3)
  - CONDITION AGGRAVATED [None]
  - PANCREATITIS [None]
  - PANCREATITIS ACUTE [None]
